FAERS Safety Report 5441671-0 (Version None)
Quarter: 2007Q3

REPORT INFORMATION
  Report Type: 
  Country: None (occurrence: None)
  Receive Date: 20070904
  Receipt Date: 20070831
  Transmission Date: 20080115
  Serious: Yes (Hospitalization)
  Sender: FDA-Public Use
  Company Number: JP-BAYER-200710610BYL

PATIENT
  Age: 55 Year
  Sex: Female

DRUGS (1)
  1. CIPROFLOXACIN [Suspect]
     Indication: URINARY TRACT INFECTION
     Dosage: TOTAL DAILY DOSE: 600 MG  UNIT DOSE: 200 MG
     Route: 048
     Dates: start: 20070817, end: 20070820

REACTIONS (1)
  - STOMATITIS [None]
